FAERS Safety Report 7584564-5 (Version None)
Quarter: 2011Q2

REPORT INFORMATION
  Report Type: 
  Country: None (occurrence: None)
  Receive Date: 20110630
  Receipt Date: 20110624
  Transmission Date: 20111010
  Serious: Yes (Death, Life-Threatening)
  Sender: FDA-Public Use
  Company Number: US-ABBOTT-11P-163-0727785-00

PATIENT
  Sex: Female
  Weight: 54.48 kg

DRUGS (6)
  1. HUMALOG [Concomitant]
     Indication: DIABETES MELLITUS
  2. DEPAKOTE ER [Suspect]
     Indication: COMPLEX PARTIAL SEIZURES
     Route: 048
     Dates: start: 20070701
  3. LANTUS [Concomitant]
     Indication: DIABETES MELLITUS
  4. KEPPRA [Concomitant]
     Indication: COMPLEX PARTIAL SEIZURES
     Dates: start: 20100801
  5. THIAMINE [Concomitant]
     Indication: PRODUCT USED FOR UNKNOWN INDICATION
  6. VITAMIN D [Concomitant]
     Indication: PRODUCT USED FOR UNKNOWN INDICATION

REACTIONS (2)
  - DEATH [None]
  - DIABETIC KETOACIDOSIS [None]
